FAERS Safety Report 5841066-1 (Version None)
Quarter: 2008Q3

REPORT INFORMATION
  Report Type: 
  Country: None (occurrence: None)
  Receive Date: 20080811
  Receipt Date: 20080731
  Transmission Date: 20090109
  Serious: Yes (Hospitalization, Other)
  Sender: FDA-Public Use
  Company Number: US-ELI_LILLY_AND_COMPANY-US200807004384

PATIENT
  Sex: Male
  Weight: 147.35 kg

DRUGS (1)
  1. BYETTA [Suspect]
     Indication: TYPE 2 DIABETES MELLITUS
     Dosage: 5 UG, 2/D
     Route: 058
     Dates: start: 20080508, end: 20080711

REACTIONS (3)
  - BLOOD UREA INCREASED [None]
  - PANCREATITIS [None]
  - WEIGHT DECREASED [None]
